FAERS Safety Report 9098661 (Version 2)
Quarter: 2013Q4

REPORT INFORMATION
  Report Type: Spontaneous
  Country: FR (occurrence: FR)
  Receive Date: 20130214
  Receipt Date: 20131226
  Transmission Date: 20140711
  Serious: Yes (Life-Threatening)
  Sender: FDA-Public Use
  Company Number: FR-NICOBRDEVP-2013-01948

PATIENT
  Age: 51 Year
  Sex: Female

DRUGS (4)
  1. CLAIRYG [Suspect]
     Indication: SECONDARY IMMUNODEFICIENCY
     Dosage: 20 G IN ONE MONTH
     Route: 042
     Dates: start: 20121129, end: 20121130
  2. BACTRIM [Concomitant]
     Indication: PRODUCT USED FOR UNKNOWN INDICATION
     Dosage: 400 MG, DAILY
     Route: 065
  3. THALIDOMIDE CELGENE [Concomitant]
     Indication: PRODUCT USED FOR UNKNOWN INDICATION
     Dosage: 50 MG, DAILY
     Route: 048
     Dates: start: 20121127, end: 20121205
  4. VALACYCLOVIR HYDROCHLORIDE [Concomitant]
     Indication: PRODUCT USED FOR UNKNOWN INDICATION
     Dosage: 500 MG, BID
     Route: 048
     Dates: start: 20131029

REACTIONS (1)
  - Bronchospasm [Recovered/Resolved]
